FAERS Safety Report 7619274-9 (Version None)
Quarter: 2011Q3

REPORT INFORMATION
  Report Type: 
  Country: None (occurrence: None)
  Receive Date: 20110718
  Receipt Date: 20110707
  Transmission Date: 20111222
  Serious: Yes (Hospitalization)
  Sender: FDA-Public Use
  Company Number: NL-BAXTER-2010BH028288

PATIENT
  Age: 65 Year
  Sex: Female

DRUGS (1)
  1. TISSEEL VH KIT [Suspect]
     Indication: WOUND CLOSURE
     Route: 065
     Dates: start: 20100924, end: 20100924

REACTIONS (1)
  - ABSCESS [None]
